FAERS Safety Report 15716994 (Version 3)
Quarter: 2021Q1

REPORT INFORMATION
  Report Type: Spontaneous
  Country: US (occurrence: US)
  Receive Date: 20181213
  Receipt Date: 20210120
  Transmission Date: 20210419
  Serious: Yes (Other)
  Sender: FDA-Public Use
  Company Number: US-PFIZER INC-2018504072

PATIENT
  Age: 58 Year
  Sex: Male

DRUGS (2)
  1. GENOTROPIN MQ [Suspect]
     Active Substance: SOMATROPIN
     Dosage: 0.4 MG, DAILY
     Dates: start: 2017
  2. GENOTROPIN MQ [Suspect]
     Active Substance: SOMATROPIN
     Dosage: 0.6 MG, DAILY

REACTIONS (14)
  - Neck pain [Unknown]
  - Head discomfort [Unknown]
  - Headache [Unknown]
  - Dizziness [Unknown]
  - Palpitations [Unknown]
  - Blood glucose increased [Unknown]
  - Blood luteinising hormone decreased [Unknown]
  - Malaise [Unknown]
  - Asthenia [Unknown]
  - Blood testosterone decreased [Unknown]
  - Abdominal pain [Unknown]
  - Weight increased [Unknown]
  - Cerebral palsy [Unknown]
  - Presyncope [Unknown]

NARRATIVE: CASE EVENT DATE: 201801
